FAERS Safety Report 19321346 (Version 1)
Quarter: 2021Q2

REPORT INFORMATION
  Report Type: Spontaneous
  Country: US (occurrence: US)
  Receive Date: 20210527
  Receipt Date: 20210527
  Transmission Date: 20210717
  Serious: No
  Sender: FDA-Public Use
  Company Number: US-ALXN-A202106082

PATIENT
  Age: 71 Year
  Sex: Female

DRUGS (2)
  1. STRENSIQ [Suspect]
     Active Substance: ASFOTASE ALFA
     Indication: HYPOPHOSPHATASIA
     Dosage: 2 INJECTIONS TWICE WEEKLY DECREASED TO 1 INJECTION TWICE WEEKLY
     Route: 058
  2. STRENSIQ [Suspect]
     Active Substance: ASFOTASE ALFA
     Dosage: 1 INJECTION TWICE WEEKLY
     Route: 058

REACTIONS (7)
  - Stress fracture [Unknown]
  - Gait disturbance [Unknown]
  - Pruritus [Unknown]
  - Skin atrophy [Unknown]
  - Fatigue [Unknown]
  - Erythema [Unknown]
  - Pyrexia [Unknown]
